FAERS Safety Report 6311347-6 (Version None)
Quarter: 2009Q3

REPORT INFORMATION
  Report Type: 
  Country: None (occurrence: None)
  Receive Date: 20090817
  Receipt Date: 20090806
  Transmission Date: 20100115
  Serious: Yes (Other)
  Sender: FDA-Public Use
  Company Number: PHHY2009BR33090

PATIENT

DRUGS (1)
  1. FORASEQ [Suspect]

REACTIONS (8)
  - COUGH [None]
  - DRUG ADMINISTRATION ERROR [None]
  - DYSPNOEA [None]
  - FATIGUE [None]
  - GAIT DISTURBANCE [None]
  - SECRETION DISCHARGE [None]
  - TREATMENT NONCOMPLIANCE [None]
  - VOMITING [None]
